FAERS Safety Report 10484374 (Version 3)
Quarter: 2015Q1

REPORT INFORMATION
  Report Type: Other
  Country: GB (occurrence: GB)
  Receive Date: 20140930
  Receipt Date: 20150107
  Transmission Date: 20150720
  Serious: Yes (Other)
  Sender: FDA-Public Use
  Company Number: GB-MYLANLABS-2014M1005090

PATIENT

DRUGS (2)
  1. THYROXINE [Concomitant]
     Active Substance: LEVOTHYROXINE
     Dosage: UNK UKN, UNK
     Route: 065
  2. AMLODIPINE [Suspect]
     Active Substance: AMLODIPINE BESYLATE
     Indication: HYPERTENSION
     Dosage: 5 MG, QD
     Route: 048
     Dates: end: 20140720

REACTIONS (11)
  - Asthenia [Unknown]
  - Renal pain [Unknown]
  - Back pain [Unknown]
  - Pain [Unknown]
  - Abdominal pain upper [Unknown]
  - Myalgia [Unknown]
  - Muscle spasms [Unknown]
  - Malaise [Unknown]
  - Pancreatitis [Unknown]
  - Gait disturbance [Unknown]
  - Arthralgia [Unknown]

NARRATIVE: CASE EVENT DATE: 20140714
